FAERS Safety Report 4649285-7 (Version None)
Quarter: 2005Q2

REPORT INFORMATION
  Report Type: 
  Country: None (occurrence: None)
  Receive Date: 20050429
  Receipt Date: 20050131
  Transmission Date: 20051028
  Serious: Yes (Hospitalization)
  Sender: FDA-Public Use
  Company Number: US-MERCK-0502USA00053

PATIENT
  Age: 39 Year
  Sex: Male
  Weight: 82 kg

DRUGS (16)
  1. LOTREL [Concomitant]
     Indication: BLOOD PRESSURE
     Route: 065
  2. VIOXX [Suspect]
     Indication: ARTHRITIS
     Route: 048
     Dates: start: 20021001, end: 20030122
  3. TRAZODONE HYDROCHLORIDE [Concomitant]
     Route: 065
  4. XANAX [Concomitant]
     Indication: ANXIETY
     Route: 065
  5. FOLIC ACID [Concomitant]
     Indication: SPINAL FUSION SURGERY
     Route: 065
  6. HYDROXYZINE HYDROCHLORIDE [Concomitant]
     Indication: PSORIASIS
     Route: 065
  7. SEROQUEL [Concomitant]
     Indication: DEPRESSION
     Route: 065
  8. AVANDIA [Concomitant]
     Indication: BLOOD GLUCOSE ABNORMAL
     Route: 065
  9. REQUIP [Concomitant]
     Indication: SPINAL FUSION SURGERY
     Route: 065
  10. NORVASC [Concomitant]
     Route: 065
     Dates: start: 20020101, end: 20041201
  11. INDOCIN [Concomitant]
     Indication: ARTHRITIS
     Route: 065
     Dates: start: 20021001
  12. CELEXA [Concomitant]
     Indication: DEPRESSION
     Route: 065
  13. METHOTREXATE [Concomitant]
     Indication: PSORIASIS
     Route: 065
     Dates: start: 19990101, end: 20041201
  14. METHOTREXATE [Concomitant]
     Indication: BLOOD PRESSURE
     Route: 065
     Dates: start: 19990101, end: 20041201
  15. ACETAMINOPHEN AND CODEINE [Concomitant]
     Route: 065
  16. ENBREL [Concomitant]
     Indication: ARTHRITIS
     Route: 065

REACTIONS (5)
  - CEREBROVASCULAR ACCIDENT [None]
  - EMOTIONAL DISTRESS [None]
  - HYPERCHOLESTEROLAEMIA [None]
  - OVERDOSE [None]
  - SLEEP APNOEA SYNDROME [None]
